FAERS Safety Report 9544305 (Version 1)
Quarter: 2013Q3

REPORT INFORMATION
  Report Type: Spontaneous
  Country: CA (occurrence: CA)
  Receive Date: 20130923
  Receipt Date: 20130923
  Transmission Date: 20140515
  Serious: Yes (Hospitalization)
  Sender: FDA-Public Use
  Company Number: CA-PFIZER INC-2013271315

PATIENT
  Age: 49 Year
  Sex: Female

DRUGS (15)
  1. SOLU-MEDROL [Suspect]
     Indication: PREMEDICATION
     Dosage: UNK
     Route: 042
     Dates: start: 2013, end: 20130912
  2. RITUXAN [Suspect]
     Indication: IMMUNE THROMBOCYTOPENIC PURPURA
     Dosage: 676 MG, WEEKLY
     Dates: start: 20130822
  3. GRAVOL [Suspect]
     Indication: INFLUENZA LIKE ILLNESS
     Dosage: UNK
     Dates: start: 20130911, end: 20130911
  4. LAMOTRIGINE [Concomitant]
     Dosage: UNK
  5. VALSARTAN [Concomitant]
     Dosage: UNK
  6. METOPROLOL [Concomitant]
     Dosage: UNK
  7. ATORVASTATIN [Concomitant]
     Dosage: UNK
  8. VITAMIN B6 [Concomitant]
     Dosage: UNK
  9. VITAMIN B12 [Concomitant]
     Dosage: UNK
  10. FOLIC ACID [Concomitant]
     Dosage: UNK
  11. OMEGA 3 [Concomitant]
     Dosage: UNK
  12. VITAMIN D [Concomitant]
     Dosage: UNK
  13. VITAMIN C [Concomitant]
     Dosage: UNK
  14. CO-Q-10 [Concomitant]
     Dosage: UNK
  15. ASA [Concomitant]
     Dosage: 81 MG, UNK

REACTIONS (4)
  - Delirium [Recovered/Resolved]
  - Influenza like illness [Unknown]
  - Emotional disorder [Not Recovered/Not Resolved]
  - Hypersensitivity [Recovered/Resolved]
